FAERS Safety Report 4327539-1 (Version None)
Quarter: 2004Q1

REPORT INFORMATION
  Report Type: 
  Country: None (occurrence: None)
  Receive Date: 20040330
  Receipt Date: 20040330
  Transmission Date: 20041129
  Serious: Yes (Death)
  Sender: FDA-Public Use
  Company Number: None

PATIENT
  Sex: Male
  Weight: 83.9154 kg

DRUGS (1)
  1. PROZAC [Suspect]
     Indication: ANXIETY
     Dosage: DAILY
     Dates: start: 19900718, end: 19900725

REACTIONS (3)
  - COMPLETED SUICIDE [None]
  - CONDITION AGGRAVATED [None]
  - FEELING ABNORMAL [None]
